FAERS Safety Report 4498425-1 (Version None)
Quarter: 2004Q4

REPORT INFORMATION
  Report Type: 
  Country: None (occurrence: None)
  Receive Date: 20041105
  Receipt Date: 20041020
  Transmission Date: 20050328
  Serious: Yes (Hospitalization)
  Sender: FDA-Public Use
  Company Number: 2004-DE-05527GD

PATIENT
  Age: 82 Year
  Sex: Female

DRUGS (2)
  1. CODEINE PHOSPHATE AND ACETAMINOPHEN [Suspect]
     Indication: CHEST PAIN
     Dates: start: 20030901
  2. BROMOCRIPTINE MESYLATE [Suspect]
     Indication: ACROMEGALY
     Dosage: 7.5 MG (THRICE DAILY)
     Dates: start: 19770101, end: 20030101

REACTIONS (16)
  - ATRIOVENTRICULAR BLOCK COMPLETE [None]
  - ATRIOVENTRICULAR BLOCK FIRST DEGREE [None]
  - BUNDLE BRANCH BLOCK RIGHT [None]
  - CATARACT [None]
  - CHEST PAIN [None]
  - CHOLELITHIASIS [None]
  - CIRCULATORY COLLAPSE [None]
  - DILATATION ATRIAL [None]
  - FATIGUE [None]
  - HEART RATE DECREASED [None]
  - HEART SOUNDS ABNORMAL [None]
  - LETHARGY [None]
  - NODAL RHYTHM [None]
  - OEDEMA PERIPHERAL [None]
  - PERICARDIAL EFFUSION [None]
  - SECONDARY HYPOTHYROIDISM [None]
